FAERS Safety Report 5061292-1 (Version None)
Quarter: 2006Q3

REPORT INFORMATION
  Report Type: 
  Country: None (occurrence: None)
  Receive Date: 20060703
  Receipt Date: 20060321
  Transmission Date: 20061208
  Serious: No
  Sender: FDA-Public Use
  Company Number: 2006PV010668

PATIENT
  Age: 48 Year
  Sex: Female
  Weight: 90.7194 kg

DRUGS (5)
  1. SYMLIN [Suspect]
     Indication: DIABETES MELLITUS INSULIN-DEPENDENT
     Dosage: 48 MCG;QD;SC
     Route: 058
     Dates: start: 20060224
  2. HUMALOG [Concomitant]
  3. LANTUS [Concomitant]
  4. AVANDIA [Concomitant]
  5. GLUCOPHAG [Concomitant]

REACTIONS (1)
  - MEDICATION ERROR [None]
